FAERS Safety Report 6656040-5 (Version None)
Quarter: 2010Q1

REPORT INFORMATION
  Report Type: 
  Country: None (occurrence: None)
  Receive Date: 20100329
  Receipt Date: 20100318
  Transmission Date: 20100710
  Serious: Yes (Hospitalization)
  Sender: FDA-Public Use
  Company Number: A0809369A

PATIENT
  Sex: Male
  Weight: 15.9 kg

DRUGS (11)
  1. BLINDED VACCINE [Suspect]
     Route: 030
     Dates: start: 20090122, end: 20090122
  2. CLINDAMYCIN [Suspect]
     Dosage: 7.5CC THREE TIMES PER DAY
     Route: 048
     Dates: start: 20090921, end: 20090922
  3. ANTIBIOTICS [Concomitant]
     Route: 048
  4. POLIO SABIN [Concomitant]
     Route: 048
     Dates: start: 20070801, end: 20070801
  5. TICE BCG [Concomitant]
     Route: 023
     Dates: start: 20070801, end: 20070801
  6. HEP B VACCINE [Concomitant]
     Route: 030
     Dates: start: 20070801, end: 20070801
  7. ROTARIX [Concomitant]
     Route: 048
     Dates: start: 20071203, end: 20071203
  8. VAXIGRIP [Concomitant]
     Route: 030
     Dates: start: 20090424, end: 20090424
  9. HAVRIX [Concomitant]
     Route: 030
     Dates: start: 20090424, end: 20090424
  10. MMR VACCINE [Concomitant]
     Route: 058
     Dates: start: 20080801, end: 20080801
  11. VARICELLA VACCINE [Concomitant]
     Route: 058
     Dates: start: 20080801, end: 20080801

REACTIONS (2)
  - DEHYDRATION [None]
  - PSEUDOMEMBRANOUS COLITIS [None]
